FAERS Safety Report 18194898 (Version 2)
Quarter: 2020Q4

REPORT INFORMATION
  Report Type: Spontaneous
  Country: US (occurrence: US)
  Receive Date: 20200825
  Receipt Date: 20201001
  Transmission Date: 20210113
  Serious: No
  Sender: FDA-Public Use
  Company Number: US-ASTRAZENECA-2020SF05435

PATIENT
  Age: 55 Year
  Sex: Female

DRUGS (2)
  1. LYNPARZA [Suspect]
     Active Substance: OLAPARIB
     Indication: OVARIAN CANCER RECURRENT
     Route: 048
     Dates: start: 20170622
  2. CEDIRINIB [Suspect]
     Active Substance: CEDIRANIB
     Indication: OVARIAN CANCER RECURRENT
     Dosage: 15.0MG UNKNOWN
     Route: 065
     Dates: start: 20170622, end: 20200521

REACTIONS (2)
  - Memory impairment [Not Recovered/Not Resolved]
  - Amnesia [Not Recovered/Not Resolved]

NARRATIVE: CASE EVENT DATE: 20200213
